FAERS Safety Report 4622286-0 (Version None)
Quarter: 2005Q1

REPORT INFORMATION
  Report Type: 
  Country: None (occurrence: None)
  Receive Date: 20050324
  Receipt Date: 20050324
  Transmission Date: 20050727
  Serious: Yes (Hospitalization, Disabling)
  Sender: FDA-Public Use
  Company Number: None

PATIENT
  Age: 57 Year
  Sex: Female
  Weight: 54.4316 kg

DRUGS (1)
  1. BEXTRA [Suspect]
     Indication: COMPLEX REGIONAL PAIN SYNDROME
     Dosage: 20 MG

REACTIONS (2)
  - ACUTE CORONARY SYNDROME [None]
  - DIABETES MELLITUS [None]
